FAERS Safety Report 5900043-2 (Version None)
Quarter: 2008Q3

REPORT INFORMATION
  Report Type: 
  Country: None (occurrence: None)
  Receive Date: 20080925
  Receipt Date: 20080925
  Transmission Date: 20090109
  Serious: Yes (Other)
  Sender: FDA-Public Use
  Company Number: None

PATIENT
  Age: 53 Year
  Sex: Female
  Weight: 81.6475 kg

DRUGS (1)
  1. LIPITOR [Suspect]
     Indication: BLOOD CHOLESTEROL INCREASED
     Dosage: 1 PILL DAILY
     Dates: start: 20070101, end: 20080924

REACTIONS (5)
  - ARTHRALGIA [None]
  - ASTHENIA [None]
  - CARPAL TUNNEL SYNDROME [None]
  - MUSCLE SPASMS [None]
  - PAIN IN EXTREMITY [None]
